FAERS Safety Report 4823584-8 (Version None)
Quarter: 2005Q4

REPORT INFORMATION
  Report Type: 
  Country: None (occurrence: None)
  Receive Date: 20051101
  Receipt Date: 20051017
  Transmission Date: 20060501
  Serious: Yes (Other)
  Sender: FDA-Public Use
  Company Number: 2005BH002397

PATIENT

DRUGS (1)
  1. IMMUNE GLOBULIN INTRAVENOUS (HUMAN) [Suspect]
     Indication: HUMAN HERPESVIRUS 6 INFECTION
     Dosage: IV
     Route: 042

REACTIONS (3)
  - ENCEPHALOPATHY [None]
  - NERVE INJURY [None]
  - OEDEMA [None]
